FAERS Safety Report 9071543 (Version 1)
Quarter: 2013Q1

REPORT INFORMATION
  Report Type: Spontaneous
  Country: MX (occurrence: MX)
  Receive Date: 20130129
  Receipt Date: 20130129
  Transmission Date: 20140127
  Serious: Yes (Other)
  Sender: FDA-Public Use
  Company Number: MX-ROCHE-1183445

PATIENT
  Age: 61 Year
  Sex: Female

DRUGS (1)
  1. LUCENTIS [Suspect]
     Indication: MACULAR DEGENERATION
     Route: 050
     Dates: start: 201207

REACTIONS (2)
  - Retinal vein thrombosis [Not Recovered/Not Resolved]
  - Eye oedema [Not Recovered/Not Resolved]
